FAERS Safety Report 9678771 (Version 2)
Quarter: 2013Q4

REPORT INFORMATION
  Report Type: Spontaneous
  Country: IT (occurrence: IT)
  Receive Date: 20131108
  Receipt Date: 20131108
  Transmission Date: 20140711
  Serious: Yes (Death)
  Sender: FDA-Public Use
  Company Number: IT-CUBIST PHARMACEUTICALS, INC.-2013CBST000369

PATIENT
  Sex: 0

DRUGS (4)
  1. CUBICIN [Suspect]
     Indication: STAPHYLOCOCCAL INFECTION
     Dosage: 6 MG/KG, Q24H  (INTRAVENOUS INFUSION)
     Route: 042
     Dates: start: 20100129, end: 20100215
  2. CUBICIN [Suspect]
     Indication: OFF LABEL USE
     Dosage: 20 MG, Q24H
     Route: 042
     Dates: start: 20100129, end: 20100215
  3. CAPTOPRIL [Concomitant]
     Indication: CARDIOVASCULAR DISORDER
     Dosage: 0.3 ??G, Q8H
     Route: 065
     Dates: start: 20100123, end: 20100202
  4. FRUSEMIDE                          /00032601/ [Concomitant]
     Indication: CARDIOVASCULAR DISORDER
     Dosage: 3 ??G, Q8H
     Route: 065
     Dates: start: 20100123, end: 20100202

REACTIONS (3)
  - Pre-existing disease [Fatal]
  - Cardiomyopathy [Fatal]
  - Cardiac failure [Fatal]
